FAERS Safety Report 15762623 (Version 1)
Quarter: 2018Q4

REPORT INFORMATION
  Report Type: Other
  Country: CA (occurrence: CA)
  Receive Date: 20181226
  Receipt Date: 20181226
  Transmission Date: 20190205
  Serious: Yes (Hospitalization)
  Sender: FDA-Public Use
  Company Number: CA-ACTELION-A-CH2018-183620

PATIENT
  Age: 70 Year
  Sex: Female

DRUGS (5)
  1. TADALAFIL. [Concomitant]
     Active Substance: TADALAFIL
  2. CLOPIDOGREL [Concomitant]
     Active Substance: CLOPIDOGREL BISULFATE
  3. TREPROSTINIL. [Concomitant]
     Active Substance: TREPROSTINIL
     Route: 058
  4. ASPIRIN. [Concomitant]
     Active Substance: ASPIRIN
  5. OPSUMIT [Suspect]
     Active Substance: MACITENTAN
     Indication: PULMONARY ARTERIAL HYPERTENSION
     Dosage: UNK
     Route: 048
     Dates: start: 201504

REACTIONS (8)
  - Chest discomfort [Unknown]
  - Dyspnoea [Unknown]
  - Myocardial ischaemia [Unknown]
  - Presyncope [Unknown]
  - Coronary artery occlusion [Unknown]
  - Pulmonary artery aneurysm [Unknown]
  - Angina pectoris [Unknown]
  - Syncope [Unknown]

NARRATIVE: CASE EVENT DATE: 201509
